FAERS Safety Report 25013082 (Version 1)
Quarter: 2025Q1

REPORT INFORMATION
  Report Type: Spontaneous
  Country: US (occurrence: US)
  Receive Date: 20250226
  Receipt Date: 20250226
  Transmission Date: 20250409
  Serious: Yes (Hospitalization)
  Sender: BRISTOL-MYERS SQUIBB COMPANY
  Company Number: US-BRISTOL-MYERS SQUIBB COMPANY-2025-024131

PATIENT
  Age: 84 Year
  Sex: Female

DRUGS (2)
  1. POMALYST [Suspect]
     Active Substance: POMALIDOMIDE
     Indication: Plasma cell myeloma
     Dates: start: 20240305
  2. POMALYST [Suspect]
     Active Substance: POMALIDOMIDE

REACTIONS (5)
  - White blood cell count decreased [Unknown]
  - Urinary tract infection [Unknown]
  - Fatigue [Unknown]
  - Influenza [Unknown]
  - Off label use [Unknown]
